FAERS Safety Report 5832471-8 (Version None)
Quarter: 2008Q3

REPORT INFORMATION
  Report Type: 
  Country: None (occurrence: None)
  Receive Date: 20080804
  Receipt Date: 20080724
  Transmission Date: 20090109
  Serious: Yes (Hospitalization, Other)
  Sender: FDA-Public Use
  Company Number: US-ROCHE-512710

PATIENT
  Sex: Female

DRUGS (9)
  1. PEG-INTERFERON A-2A (RO 25-8310) [Suspect]
     Dosage: FORM: PRE-FILLED SYRINGE (PFS).OTHER INDICATION: CIRRHOSIS
     Route: 065
     Dates: start: 20070630, end: 20080717
  2. RIBAVIRIN [Suspect]
     Dosage: OTHER INDICATION: CIRRHOSIS.
     Route: 065
     Dates: start: 20070630, end: 20070730
  3. RIBAVIRIN [Suspect]
     Route: 065
  4. RIBAVIRIN [Suspect]
     Route: 065
     Dates: start: 20070731, end: 20080717
  5. HYDROCHLOROTHIAZIDE [Concomitant]
     Indication: HYPERTENSION
  6. BENADRYL [Concomitant]
  7. TYLENOL [Concomitant]
  8. 1 CONCOMITANT DRUG [Concomitant]
     Indication: DEPRESSION
  9. 1 CONCOMITANT DRUG [Concomitant]
     Dates: start: 20080515

REACTIONS (5)
  - ANGIOPATHY [None]
  - ARTERIOSCLEROSIS [None]
  - HAEMATEMESIS [None]
  - HAEMATOCHEZIA [None]
  - MUSCLE SPASMS [None]
